FAERS Safety Report 17945688 (Version 1)
Quarter: 2020Q2

REPORT INFORMATION
  Report Type: Spontaneous
  Country: CH (occurrence: CH)
  Receive Date: 20200625
  Receipt Date: 20200625
  Transmission Date: 20200714
  Serious: Yes (Other)
  Sender: FDA-Public Use
  Company Number: CH-ASTRAZENECA-2020SE81169

PATIENT
  Sex: Male

DRUGS (4)
  1. LYNPARZA [Suspect]
     Active Substance: OLAPARIB
     Indication: METASTASES TO LYMPH NODES
     Dosage: UNK
     Route: 048
     Dates: start: 202005
  2. LYNPARZA [Suspect]
     Active Substance: OLAPARIB
     Indication: METASTASES TO BONE
     Dosage: UNK
     Route: 048
     Dates: start: 202005
  3. LYNPARZA [Suspect]
     Active Substance: OLAPARIB
     Indication: METASTASES TO LUNG
     Dosage: UNK
     Route: 048
     Dates: start: 202005
  4. LYNPARZA [Suspect]
     Active Substance: OLAPARIB
     Indication: PROSTATE CANCER METASTATIC
     Dosage: UNK
     Route: 048
     Dates: start: 202005

REACTIONS (1)
  - Malignant neoplasm progression [Unknown]
